FAERS Safety Report 9326290 (Version 1)
Quarter: 2013Q2

REPORT INFORMATION
  Report Type: Spontaneous
  Country: FR (occurrence: FR)
  Receive Date: 20130604
  Receipt Date: 20130604
  Transmission Date: 20140414
  Serious: Yes (Hospitalization)
  Sender: FDA-Public Use
  Company Number: FR-009507513-1305FRA015740

PATIENT
  Age: 22 Year
  Sex: Female

DRUGS (1)
  1. IMPLANON [Suspect]
     Indication: CONTRACEPTION
     Dosage: 1 DF, ONCE
     Route: 050
     Dates: start: 20010515

REACTIONS (4)
  - Therapeutic response unexpected [Unknown]
  - Therapeutic response decreased [Unknown]
  - Unintended pregnancy [Unknown]
  - Medical device complication [Unknown]
